FAERS Safety Report 10092743 (Version 1)
Quarter: 2014Q2

REPORT INFORMATION
  Report Type: Spontaneous
  Country: US (occurrence: US)
  Receive Date: 20140421
  Receipt Date: 20140421
  Transmission Date: 20141212
  Serious: No
  Sender: FDA-Public Use
  Company Number: US-SANOFI-AVENTIS-2013SA065325

PATIENT
  Sex: Female

DRUGS (3)
  1. ALLEGRA ALLERGY, 12 HR [Suspect]
     Route: 048
  2. ALLEGRA 24 HOUR [Suspect]
     Route: 048
  3. BENADRYL /OLD FORM/ [Suspect]
     Route: 065

REACTIONS (2)
  - Nasal dryness [Unknown]
  - Dyspnoea [Unknown]
